FAERS Safety Report 7774739-4 (Version None)
Quarter: 2011Q3

REPORT INFORMATION
  Report Type: 
  Country: None (occurrence: None)
  Receive Date: 20110923
  Receipt Date: 20110913
  Transmission Date: 20111222
  Serious: Yes (Hospitalization)
  Sender: FDA-Public Use
  Company Number: US-JNJFOC-20110906070

PATIENT
  Sex: Male
  Weight: 136.99 kg

DRUGS (2)
  1. REMICADE [Suspect]
     Indication: ANKYLOSING SPONDYLITIS
     Route: 042
     Dates: start: 20110101
  2. REMICADE [Suspect]
     Route: 042

REACTIONS (1)
  - PNEUMONIA FUNGAL [None]
